FAERS Safety Report 5752386-3 (Version None)
Quarter: 2008Q2

REPORT INFORMATION
  Report Type: 
  Country: None (occurrence: None)
  Receive Date: 20080529
  Receipt Date: 20080523
  Transmission Date: 20081010
  Serious: Yes (Hospitalization)
  Sender: FDA-Public Use
  Company Number: A0726882A

PATIENT
  Age: 71 Year
  Sex: Female

DRUGS (18)
  1. ADVAIR DISKUS 100/50 [Suspect]
     Indication: ASTHMA
     Dosage: 1PUFF TWICE PER DAY
     Route: 055
     Dates: start: 20050501
  2. ADVAIR DISKUS 100/50 [Suspect]
     Dosage: 1PUFF TWICE PER DAY
     Route: 055
     Dates: start: 20070601, end: 20070816
  3. SEREVENT [Suspect]
     Indication: ASTHMA
     Route: 055
     Dates: start: 20070816, end: 20070922
  4. SANCTURA [Suspect]
     Dates: end: 20080506
  5. SINGULAIR [Suspect]
  6. PROTONIX [Concomitant]
  7. COZAAR [Concomitant]
  8. JANUMET [Concomitant]
  9. NASONEX [Concomitant]
  10. SYSTANE [Concomitant]
  11. CLARINEX [Concomitant]
  12. NORVASC [Concomitant]
  13. VYTORIN [Concomitant]
  14. ZOLOFT [Concomitant]
  15. AMOXICILLIN [Concomitant]
  16. ATIVAN [Concomitant]
  17. PROVENTIL [Concomitant]
  18. XOPENEX [Concomitant]

REACTIONS (5)
  - ASTHMA [None]
  - DRUG INEFFECTIVE [None]
  - DYSPHONIA [None]
  - THROAT IRRITATION [None]
  - VOCAL CORD DISORDER [None]
